FAERS Safety Report 14260535 (Version 1)
Quarter: 2017Q4

REPORT INFORMATION
  Report Type: Spontaneous
  Country: US (occurrence: US)
  Receive Date: 20171207
  Receipt Date: 20171207
  Transmission Date: 20180321
  Serious: Yes (Disabling, Other)
  Sender: FDA-Public Use
  Company Number: US-PFIZER INC-2016031119

PATIENT
  Sex: Female
  Weight: 79.37 kg

DRUGS (22)
  1. PANTOPRAZOLE [Concomitant]
     Active Substance: PANTOPRAZOLE
     Dosage: 40 MG, 2X/DAY
  2. CLONAZEPAM. [Concomitant]
     Active Substance: CLONAZEPAM
     Dosage: 6 MG, DAILY (1 TABLET IN THE MORNING, 2 TABLETS IN THE EVENING)
  3. LYRICA [Suspect]
     Active Substance: PREGABALIN
     Indication: NEURALGIA
     Dosage: 150 MG, 2X/DAY
     Route: 048
     Dates: start: 20161028
  4. DEPAKOTE [Concomitant]
     Active Substance: DIVALPROEX SODIUM
     Dosage: 2500 MG, DAILY (2 TABLETS IN THE MORNING, 3 TABLETS IN THE EVENING)
  5. FOLIC ACID. [Concomitant]
     Active Substance: FOLIC ACID
     Dosage: 1 MG, 1X/DAY
  6. FIORICET WITH CODEINE [Concomitant]
     Active Substance: ACETAMINOPHEN\BUTALBITAL\CAFFEINE\CODEINE PHOSPHATE
     Dosage: 1 TABLET EVERY 4HOURS AS NEEDED
  7. LYRICA [Suspect]
     Active Substance: PREGABALIN
     Indication: FIBROMYALGIA
  8. LEVOTHYROXINE. [Concomitant]
     Active Substance: LEVOTHYROXINE
     Dosage: 0.75 UG, 1X/DAY
  9. XOPENEX [Concomitant]
     Active Substance: LEVALBUTEROL HYDROCHLORIDE
     Indication: ASTHMA
     Dosage: 1 NEBULIZATION EVERY 4 HOURS AS NEEDED
  10. ATORVASTATIN [Concomitant]
     Active Substance: ATORVASTATIN
     Dosage: 10 MG, 1X/DAY (EVERY NIGHT)
  11. POTASSIUM [Concomitant]
     Active Substance: POTASSIUM
     Dosage: 20 MG, 1X/DAY
  12. ALBUTEROL. [Concomitant]
     Active Substance: ALBUTEROL
     Indication: ASTHMA
     Dosage: 1 PUFF EVERY 4 HOURS AS NEEDED
     Route: 055
  13. LEVOTHYROXINE. [Concomitant]
     Active Substance: LEVOTHYROXINE
     Dosage: 100 UG, 1X/DAY
  14. VITAMIN B12 [Concomitant]
     Active Substance: CYANOCOBALAMIN
     Dosage: 5000 MG, 2X/DAY
  15. VITAMIN D3 [Concomitant]
     Active Substance: CHOLECALCIFEROL
     Dosage: 1000 IU, 1X/DAY
  16. HYOSCYAMINE. [Concomitant]
     Active Substance: HYOSCYAMINE
     Indication: ABDOMINAL PAIN
     Dosage: 2 TABLETS EVERY 4 HOURS AS NEEDED
  17. VIMPAT [Concomitant]
     Active Substance: LACOSAMIDE
     Dosage: 200 MG, 2X/DAY
  18. FIORICET WITH CODEINE [Concomitant]
     Active Substance: ACETAMINOPHEN\BUTALBITAL\CAFFEINE\CODEINE PHOSPHATE
     Indication: MIGRAINE
     Dosage: 1 TABLET EVERY 6 HOURS AS NEEDED
  19. ADVAIR HFA [Concomitant]
     Active Substance: FLUTICASONE PROPIONATE\SALMETEROL XINAFOATE
     Dosage: 1 PUFF, 2X/DAY
  20. LYRICA [Suspect]
     Active Substance: PREGABALIN
     Indication: FIBROMYALGIA
     Dosage: 75 MG, 2X/DAY
  21. VERAPAMIL [Concomitant]
     Active Substance: VERAPAMIL HYDROCHLORIDE
     Dosage: 40 MG, 3X/DAY
  22. TYLENOL ARTHRITIS PAIN [Concomitant]
     Active Substance: ACETAMINOPHEN
     Indication: ARTHRITIS
     Dosage: 2 DF, 2X/DAY (2 TABLETS IN THE MORNING, 2 TABLETS IN THE EVENING)

REACTIONS (10)
  - Adrenal insufficiency [Not Recovered/Not Resolved]
  - Pulmonary mass [Unknown]
  - Hypothyroidism [Not Recovered/Not Resolved]
  - Weight increased [Unknown]
  - Back pain [Unknown]
  - Drug dose omission [Unknown]
  - Feeling abnormal [Unknown]
  - Generalised tonic-clonic seizure [Recovering/Resolving]
  - Dysphonia [Unknown]
  - Back injury [Unknown]

NARRATIVE: CASE EVENT DATE: 2004
